FAERS Safety Report 15749719 (Version 1)
Quarter: 2018Q4

REPORT INFORMATION
  Report Type: Spontaneous
  Country: US (occurrence: US)
  Receive Date: 20181205
  Receipt Date: 20181205
  Transmission Date: 20190205
  Serious: No
  Sender: FDA-Public Use
  Company Number: None

PATIENT
  Sex: Female

DRUGS (1)
  1. ENBREL [Suspect]
     Active Substance: ETANERCEPT
     Indication: RHEUMATOID ARTHRITIS
     Dates: start: 20180706, end: 20181105

REACTIONS (5)
  - Abdominal discomfort [None]
  - Burning sensation [None]
  - Chest pain [None]
  - Discomfort [None]
  - Nightmare [None]
